FAERS Safety Report 9674530 (Version 1)
Quarter: 2013Q4

REPORT INFORMATION
  Report Type: Spontaneous
  Country: US (occurrence: None)
  Receive Date: 20131105
  Receipt Date: 20131105
  Transmission Date: 20140711
  Serious: Yes (Life-Threatening, Hospitalization, Disabling, Other)
  Sender: FDA-Public Use
  Company Number: None

PATIENT
  Age: 8 Year
  Sex: Male
  Weight: 80 kg

DRUGS (1)
  1. PREDNISOLONE SODIUM PHOSPHATE [Suspect]
     Indication: RASH
     Dosage: 1 TSP. 3X DAILY MOUTH
     Route: 048
     Dates: start: 20081229

REACTIONS (5)
  - Insomnia [None]
  - Abdominal pain upper [None]
  - Skeletal injury [None]
  - Blood glucose increased [None]
  - Ill-defined disorder [None]
